FAERS Safety Report 20871677 (Version 1)
Quarter: 2022Q2

REPORT INFORMATION
  Report Type: Spontaneous
  Country: US (occurrence: None)
  Receive Date: 20220524
  Receipt Date: 20220524
  Transmission Date: 20220720
  Serious: Yes (Death, Hospitalization)
  Sender: FDA-Public Use
  Company Number: None

PATIENT
  Age: 82 Year
  Sex: Male
  Weight: 79.8 kg

DRUGS (2)
  1. VENETOCLAX [Suspect]
     Active Substance: VENETOCLAX
     Indication: Acute myeloid leukaemia
     Dosage: FREQUENCY : DAILY;?
     Route: 048
     Dates: start: 20220503, end: 20220503
  2. AZACITIDINE [Concomitant]
     Active Substance: AZACITIDINE
     Dates: start: 20220502, end: 20220503

REACTIONS (3)
  - Dyspnoea [None]
  - Hypoxia [None]
  - Lung infiltration [None]

NARRATIVE: CASE EVENT DATE: 20220503
